FAERS Safety Report 15132830 (Version 2)
Quarter: 2018Q3

REPORT INFORMATION
  Report Type: Report from Study
  Country: DE (occurrence: DE)
  Receive Date: 20180712
  Receipt Date: 20180803
  Transmission Date: 20181010
  Serious: Yes (Death, Life-Threatening, Hospitalization, Other)
  Sender: FDA-Public Use
  Company Number: DE-TEVA-2018-DE-922859

PATIENT
  Sex: Female
  Weight: 63 kg

DRUGS (4)
  1. IMERON [Concomitant]
     Active Substance: IOMEPROL
     Indication: PRODUCT USED FOR UNKNOWN INDICATION
     Route: 065
     Dates: start: 20180411
  2. KISQALI [Suspect]
     Active Substance: RIBOCICLIB
     Indication: BREAST CANCER
     Dosage: 600 MILLIGRAM DAILY; 600 MG, QD (200 MG X3) (1?0?0) 5 CYCLES
     Route: 048
     Dates: start: 20171122, end: 20180404
  3. ANASTROZOLE. [Suspect]
     Active Substance: ANASTROZOLE
     Route: 048
     Dates: start: 201711, end: 20180411
  4. LETROZOLE. [Suspect]
     Active Substance: LETROZOLE
     Indication: BREAST CANCER
     Dosage: 2.5 MILLIGRAM DAILY; 2.5 MG, QD (1?0?0)  5 CYCLES
     Route: 048
     Dates: start: 20171122, end: 20180404

REACTIONS (19)
  - Nitrituria [Unknown]
  - Multiple organ dysfunction syndrome [Unknown]
  - Rales [Unknown]
  - Circulatory collapse [Unknown]
  - Abdominal distension [Unknown]
  - Death [Fatal]
  - Cardiac failure [Unknown]
  - Back pain [Unknown]
  - Urinary tract infection bacterial [Unknown]
  - General physical health deterioration [Unknown]
  - Ascites [Unknown]
  - Pleural effusion [Unknown]
  - Hepatic enzyme increased [Unknown]
  - Blood pressure decreased [Unknown]
  - Anaemia [Recovering/Resolving]
  - Venous occlusion [Unknown]
  - Dyspnoea exertional [Unknown]
  - Fall [Unknown]
  - Pallor [Unknown]

NARRATIVE: CASE EVENT DATE: 20180411
